FAERS Safety Report 10129724 (Version 3)
Quarter: 2014Q3

REPORT INFORMATION
  Report Type: Spontaneous
  Country: US (occurrence: None)
  Receive Date: 20140421
  Receipt Date: 20140722
  Transmission Date: 20150326
  Serious: No
  Sender: FDA-Public Use
  Company Number: AEGR000255

PATIENT
  Age: 63 Year
  Sex: Female
  Weight: 69.8 kg

DRUGS (13)
  1. VITAMIN E (TOCOPHERYL ACID SUCCINATE) [Concomitant]
  2. LISINOPRIL (LISINOPRIL) [Concomitant]
     Active Substance: LISINOPRIL
  3. PROGESTERONE (PROGESTERONE) [Concomitant]
  4. PREVACID [Concomitant]
     Active Substance: LANSOPRAZOLE
  5. JUXTAPID [Suspect]
     Active Substance: LOMITAPIDE MESYLATE
     Indication: TYPE IIA HYPERLIPIDAEMIA
     Dates: start: 2013, end: 201310
  6. HYDROCHLOROTHIAZIDE (HYDROCHLOROTHIAZIDE) [Concomitant]
     Active Substance: HYDROCHLOROTHIAZIDE
  7. MICARDIS [Concomitant]
     Active Substance: TELMISARTAN
  8. ZEBETA (BISOPROLOL FUMARATE) [Concomitant]
  9. FISH OIL (FISH OIL) [Concomitant]
     Active Substance: FISH OIL
  10. IMITREX [Concomitant]
     Active Substance: SUMATRIPTAN\SUMATRIPTAN SUCCINATE
  11. ESGIC (BUTALBITAL, CAFFEINE, PARACETAMOL) [Concomitant]
  12. VITAMIN D (COLECALCIFEROL) [Concomitant]
  13. ZYRTEC [Concomitant]
     Active Substance: CETIRIZINE HYDROCHLORIDE

REACTIONS (3)
  - Weight decreased [None]
  - Nausea [None]
  - Diarrhoea [None]

NARRATIVE: CASE EVENT DATE: 2013
